FAERS Safety Report 4649523-0 (Version None)
Quarter: 2005Q2

REPORT INFORMATION
  Report Type: 
  Country: None (occurrence: None)
  Receive Date: 20050427
  Receipt Date: 20050415
  Transmission Date: 20051028
  Serious: Yes (Other)
  Sender: FDA-Public Use
  Company Number: 2005061292

PATIENT
  Age: 73 Year
  Sex: Male
  Weight: 112.4921 kg

DRUGS (5)
  1. LIPITOR [Suspect]
     Indication: BLOOD CHOLESTEROL INCREASED
     Dosage: 10 MG (10 MG, 1 IN 1 D)
     Dates: start: 20030101, end: 20041001
  2. LEUPRORELIN ACETATE (LEUPRORELIN ACETATE) [Suspect]
     Indication: PROSTATE CANCER
     Dosage: SUBCUTANEOUS
     Route: 058
  3. MULTIVITAMINS (ASCORBIC ACID, ERGOCALCIFEROL, FOLIC ACID, NICOTINAMIDE [Concomitant]
  4. FISH OIL (FISH OIL) [Concomitant]
  5. ASPIRIN [Concomitant]

REACTIONS (7)
  - FINGER DEFORMITY [None]
  - HOT FLUSH [None]
  - HYPOAESTHESIA [None]
  - MUSCLE DISORDER [None]
  - MUSCLE TIGHTNESS [None]
  - PROSTATE CANCER [None]
  - TENDINOUS CONTRACTURE [None]
